FAERS Safety Report 8609533-5 (Version None)
Quarter: 2012Q3

REPORT INFORMATION
  Report Type: 
  Country: None (occurrence: None)
  Receive Date: 20120821
  Receipt Date: 20120806
  Transmission Date: 20120928
  Serious: No
  Sender: FDA-Public Use
  Company Number: US-ASTRAZENECA-2011SE52333

PATIENT
  Age: 53 Year
  Sex: Male
  Weight: 87.5 kg

DRUGS (21)
  1. ASPIRIN [Concomitant]
  2. TAMSULOSIN HCI [Concomitant]
  3. SULFACETAMIDE SODIUM [Concomitant]
  4. INFLUENZA WHOLE [Concomitant]
  5. NEXIUM [Suspect]
     Indication: GASTROOESOPHAGEAL REFLUX DISEASE
     Dosage: BEFORE BREAKFAST
     Route: 048
  6. TOPROL-XL [Suspect]
     Route: 048
  7. PRAVASTATIN [Concomitant]
  8. PROMETHAZINE [Concomitant]
  9. DIAZEPAM [Concomitant]
  10. CEFUROXIME [Concomitant]
  11. RIFAXIMIN [Concomitant]
  12. TRIAMTERENE AND HYDROCHLOROTHIAZIDE [Concomitant]
  13. LACTULOSE [Concomitant]
  14. FOLIC ACID [Concomitant]
  15. NEXIUM [Suspect]
     Route: 048
  16. OXYCODONE HCL [Concomitant]
     Indication: PAIN
  17. NORVASC [Concomitant]
     Indication: CARDIAC DISORDER
  18. BENZONATATE [Concomitant]
  19. LIDOCAINE [Concomitant]
  20. ONDANSETRON [Concomitant]
  21. NITROGLYCERIN [Concomitant]

REACTIONS (11)
  - BACK PAIN [None]
  - PAIN [None]
  - ARTERIOSCLEROSIS CORONARY ARTERY [None]
  - EYE IRRITATION [None]
  - HAEMATOMA [None]
  - DIVERTICULITIS [None]
  - ABDOMINAL PAIN [None]
  - HYPERTENSION [None]
  - OESOPHAGITIS [None]
  - HEPATITIS C [None]
  - BRONCHITIS [None]
